FAERS Safety Report 22140352 (Version 1)
Quarter: 2023Q1

REPORT INFORMATION
  Report Type: Spontaneous
  Country: US (occurrence: None)
  Receive Date: 20230323
  Receipt Date: 20230323
  Transmission Date: 20230418
  Serious: Yes (Other)
  Sender: FDA-Public Use
  Company Number: None

PATIENT
  Sex: Female

DRUGS (2)
  1. HUMIRA [Suspect]
     Active Substance: ADALIMUMAB
     Indication: Colitis
     Dosage: OTHER QUANTITY : 40 MG/0.4ML;?FREQUENCY : WEEKLY;?
     Route: 058
     Dates: start: 20210625
  2. CETIRIZINE [Concomitant]

REACTIONS (2)
  - Abscess [None]
  - Acne [None]
